FAERS Safety Report 5858900-1 (Version None)
Quarter: 2008Q3

REPORT INFORMATION
  Report Type: 
  Country: None (occurrence: None)
  Receive Date: 20080825
  Receipt Date: 20071001
  Transmission Date: 20090109
  Serious: Yes (Other)
  Sender: FDA-Public Use
  Company Number: PAR_01757_2007

PATIENT
  Sex: Female
  Weight: 66.9509 kg

DRUGS (14)
  1. MEGACE ES [Suspect]
     Indication: DECREASED APPETITE
     Dosage: (625 MG QD ORAL)
     Route: 048
     Dates: start: 20070801, end: 20070831
  2. ALBUTEROL [Concomitant]
  3. CARBIDOPA AND LEVODOPA [Concomitant]
  4. FAMOTIDINE [Concomitant]
  5. REMERON [Concomitant]
  6. RISPERDAL [Concomitant]
  7. CARBAMAZEPINE [Concomitant]
  8. SEROQUEL [Concomitant]
  9. LEVOTHYROXINE SODIUM [Concomitant]
  10. TRAZODONE HCL [Concomitant]
  11. POTASSIUM CHLORIDE [Concomitant]
  12. MULTI-VITAMINS [Concomitant]
  13. NIASPAN [Concomitant]
  14. CALCIUM W/VITAMIN D NOS [Concomitant]

REACTIONS (2)
  - DEEP VEIN THROMBOSIS [None]
  - OEDEMA PERIPHERAL [None]
